FAERS Safety Report 6249747-5 (Version None)
Quarter: 2009Q2

REPORT INFORMATION
  Report Type: 
  Country: None (occurrence: None)
  Receive Date: 20090629
  Receipt Date: 20090625
  Transmission Date: 20091009
  Serious: Yes (Hospitalization)
  Sender: FDA-Public Use
  Company Number: FR-WYE-G03926709

PATIENT
  Sex: Female
  Weight: 10 kg

DRUGS (6)
  1. ADVIL [Suspect]
     Indication: PYREXIA
     Route: 048
     Dates: start: 20090531, end: 20090602
  2. AMOXICILLIN [Concomitant]
     Dosage: UNKNOWN
     Route: 048
     Dates: start: 20090603, end: 20090605
  3. HELICIDINE [Suspect]
     Indication: COUGH
     Route: 048
     Dates: start: 20090603, end: 20090605
  4. NUREFLEX [Suspect]
     Indication: PYREXIA
     Route: 048
     Dates: start: 20090605, end: 20090610
  5. DOLIPRANE [Concomitant]
     Indication: PYREXIA
     Dosage: UNKNOWN
     Route: 048
     Dates: start: 20090531, end: 20090602
  6. CELESTENE [Suspect]
     Indication: COUGH
     Route: 048
     Dates: start: 20090603, end: 20090605

REACTIONS (3)
  - CONDITION AGGRAVATED [None]
  - INFECTION [None]
  - PNEUMONIA [None]
